FAERS Safety Report 20422116 (Version 1)
Quarter: 2022Q1

REPORT INFORMATION
  Report Type: Spontaneous
  Country: US (occurrence: US)
  Receive Date: 20220203
  Receipt Date: 20220203
  Transmission Date: 20220424
  Serious: Yes (Hospitalization)
  Sender: FDA-Public Use
  Company Number: US-BRISTOL-MYERS SQUIBB COMPANY-BMS-2022-015996

PATIENT
  Age: 66 Year
  Sex: Male

DRUGS (5)
  1. OPDIVO [Suspect]
     Active Substance: NIVOLUMAB
     Indication: Product used for unknown indication
     Dosage: 480 MILLIGRAM, Q4WK
     Route: 042
  2. TOPROL XL [Concomitant]
     Active Substance: METOPROLOL SUCCINATE
     Indication: Product used for unknown indication
     Route: 065
  3. ASPIRIN [Concomitant]
     Active Substance: ASPIRIN
     Indication: Product used for unknown indication
     Route: 065
  4. OMEPRAZOLE [Concomitant]
     Active Substance: OMEPRAZOLE
     Indication: Product used for unknown indication
     Route: 065
  5. SPIRONOLACTONE [Concomitant]
     Active Substance: SPIRONOLACTONE
     Indication: Product used for unknown indication
     Route: 065

REACTIONS (1)
  - Hospitalisation [Unknown]
